FAERS Safety Report 13234350 (Version 1)
Quarter: 2017Q1

REPORT INFORMATION
  Report Type: Spontaneous
  Country: US (occurrence: US)
  Receive Date: 20170215
  Receipt Date: 20170215
  Transmission Date: 20170428
  Serious: Yes (Hospitalization)
  Sender: FDA-Public Use
  Company Number: None

PATIENT
  Age: 58 Year
  Sex: Female

DRUGS (4)
  1. OMEPRAZOLE. [Suspect]
     Active Substance: OMEPRAZOLE
  2. PANTOPRAZOLE [Suspect]
     Active Substance: PANTOPRAZOLE SODIUM
  3. CEFEPIME [Suspect]
     Active Substance: CEFEPIME HYDROCHLORIDE
  4. MEGESTROL [Suspect]
     Active Substance: MEGESTROL

REACTIONS (1)
  - Clostridium difficile infection [None]

NARRATIVE: CASE EVENT DATE: 20160727
